FAERS Safety Report 18417426 (Version 5)
Quarter: 2022Q3

REPORT INFORMATION
  Report Type: Spontaneous
  Country: JP (occurrence: JP)
  Receive Date: 20201023
  Receipt Date: 20220728
  Transmission Date: 20221026
  Serious: Yes (Other)
  Sender: FDA-Public Use
  Company Number: JP-MSD-M2020-15701

PATIENT
  Age: 82 Year
  Sex: Female
  Weight: 39 kg

DRUGS (2)
  1. KEYTRUDA [Suspect]
     Active Substance: PEMBROLIZUMAB
     Indication: Malignant melanoma stage IV
     Dosage: 200 MILLIGRAM, Q3W
     Route: 041
     Dates: start: 20200409, end: 20200706
  2. LEVOTHYROXINE SODIUM [Concomitant]
     Active Substance: LEVOTHYROXINE SODIUM
     Indication: Thyroid cancer
     Dosage: 50 MICROGRAM, TID
     Route: 048
     Dates: start: 1989

REACTIONS (3)
  - Cystoid macular oedema [Unknown]
  - Choroidal detachment [Recovered/Resolved]
  - Immune-mediated uveitis [Recovering/Resolving]

NARRATIVE: CASE EVENT DATE: 20200101
